FAERS Safety Report 4639521-5 (Version None)
Quarter: 2005Q2

REPORT INFORMATION
  Report Type: 
  Country: None (occurrence: None)
  Receive Date: 20050419
  Receipt Date: 20050404
  Transmission Date: 20051028
  Serious: Yes (Hospitalization)
  Sender: FDA-Public Use
  Company Number: 2004IM000944

PATIENT
  Age: 62 Year
  Sex: Female
  Weight: 74.8435 kg

DRUGS (18)
  1. INTERFERON GAMMA - 1B [Suspect]
     Indication: PULMONARY FIBROSIS
     Dosage: SEE IMAGE
     Route: 058
     Dates: start: 20031203, end: 20041110
  2. INTERFERON GAMMA - 1B [Suspect]
     Indication: PULMONARY FIBROSIS
     Dosage: SEE IMAGE
     Route: 058
     Dates: start: 20041117, end: 20041210
  3. INTERFERON GAMMA - 1B [Suspect]
     Indication: PULMONARY FIBROSIS
     Dosage: SEE IMAGE
     Route: 058
     Dates: start: 20050110
  4. PREDNISONE [Concomitant]
  5. INDAPAMIDE [Concomitant]
  6. LIPITOR [Concomitant]
  7. SYNTHROID [Concomitant]
  8. OMEPRAZOLE [Concomitant]
  9. PREMPRO [Concomitant]
  10. ALLEGRA [Concomitant]
  11. ZETIA [Concomitant]
  12. MULTIVIT [Concomitant]
  13. CALCIUM WITH VITAMIN D [Concomitant]
  14. GLUCOSAMINE W/CHONDROITIN SULFATES [Concomitant]
  15. FISH OIL [Concomitant]
  16. VICODIN [Concomitant]
  17. CEPHALEXIN [Concomitant]
  18. CELEBREX [Concomitant]

REACTIONS (7)
  - IMMUNOSUPPRESSION [None]
  - IMPAIRED HEALING [None]
  - MUSCLE GRAFT [None]
  - POST PROCEDURAL COMPLICATION [None]
  - POSTOPERATIVE INFECTION [None]
  - SKIN GRAFT [None]
  - TIBIA FRACTURE [None]
